FAERS Safety Report 9094420 (Version 1)
Quarter: 2013Q1

REPORT INFORMATION
  Report Type: Spontaneous
  Country: US (occurrence: US)
  Receive Date: 20130131
  Receipt Date: 20130131
  Transmission Date: 20140127
  Serious: No
  Sender: FDA-Public Use
  Company Number: US-ABBOTT-12P-163-1015390-00

PATIENT
  Sex: Female
  Weight: 58.11 kg

DRUGS (3)
  1. HUMIRA [Suspect]
     Indication: CROHN^S DISEASE
     Dates: start: 201108
  2. LIALDA [Concomitant]
     Indication: CROHN^S DISEASE
  3. BIRTH CONTROL [Concomitant]
     Indication: CONTRACEPTION

REACTIONS (2)
  - Injection site pain [Recovered/Resolved]
  - Injection site pain [Not Recovered/Not Resolved]
